FAERS Safety Report 4612616-8 (Version None)
Quarter: 2005Q1

REPORT INFORMATION
  Report Type: 
  Country: None (occurrence: None)
  Receive Date: 20050316
  Receipt Date: 20050301
  Transmission Date: 20050727
  Serious: Yes (Hospitalization)
  Sender: FDA-Public Use
  Company Number: 2004BI000962

PATIENT
  Age: 48 Year
  Sex: Male

DRUGS (1)
  1. AVONEX [Suspect]
     Indication: MULTIPLE SCLEROSIS
     Dosage: 30 U G; QW; IM
     Route: 030
     Dates: start: 20031031

REACTIONS (5)
  - ANOREXIA [None]
  - BACK PAIN [None]
  - EATING DISORDER [None]
  - PAIN IN EXTREMITY [None]
  - WEIGHT DECREASED [None]
